FAERS Safety Report 13882171 (Version 1)
Quarter: 2017Q3

REPORT INFORMATION
  Report Type: Spontaneous
  Country: RU (occurrence: RU)
  Receive Date: 20170818
  Receipt Date: 20170818
  Transmission Date: 20171127
  Serious: Yes (Other)
  Sender: FDA-Public Use
  Company Number: RU-BAYER-2017-154099

PATIENT
  Sex: Female

DRUGS (1)
  1. YARINA [Suspect]
     Active Substance: DROSPIRENONE\ETHINYL ESTRADIOL
     Dosage: UNK
     Route: 048

REACTIONS (6)
  - Nausea [None]
  - Abdominal pain [None]
  - Diarrhoea [None]
  - Decreased appetite [None]
  - Abdominal pain upper [None]
  - Pancreatitis [None]
